FAERS Safety Report 9181751 (Version 2)
Quarter: 2013Q2

REPORT INFORMATION
  Report Type: Spontaneous
  Country: AU (occurrence: AU)
  Receive Date: 20130322
  Receipt Date: 20130403
  Transmission Date: 20140414
  Serious: Yes (Hospitalization, Other)
  Sender: FDA-Public Use
  Company Number: AU-RANBAXY-2013RR-66298

PATIENT
  Age: 39 Year
  Sex: Female

DRUGS (3)
  1. LORAZEPAM [Suspect]
     Indication: SCHIZOPHRENIA
     Dosage: 2 MG, UNK
     Route: 065
  2. CLOZAPINE [Suspect]
     Indication: SCHIZOPHRENIA
     Dosage: 200 MG/DAY
     Route: 065
  3. RISPERIDONE [Concomitant]
     Indication: SCHIZOPHRENIA
     Dosage: UNK
     Route: 065

REACTIONS (3)
  - Withdrawal syndrome [Recovering/Resolving]
  - Psychotic disorder [Recovering/Resolving]
  - Catatonia [Recovering/Resolving]
